FAERS Safety Report 19879732 (Version 1)
Quarter: 2021Q3

REPORT INFORMATION
  Report Type: Spontaneous
  Country: CN (occurrence: CN)
  Receive Date: 20210924
  Receipt Date: 20210924
  Transmission Date: 20211014
  Serious: Yes (Other)
  Sender: FDA-Public Use
  Company Number: CN-PFIZER INC-202101226120

PATIENT
  Age: 70 Year
  Sex: Male
  Weight: 53.7 kg

DRUGS (1)
  1. DIFLUCAN [Suspect]
     Active Substance: FLUCONAZOLE
     Indication: CANDIDA INFECTION
     Dosage: 200 MG, 1X/DAY
     Route: 042
     Dates: start: 20210903, end: 20210906

REACTIONS (3)
  - Off label use [Unknown]
  - Hepatic enzyme increased [Recovering/Resolving]
  - Product use issue [Unknown]

NARRATIVE: CASE EVENT DATE: 20210903
